FAERS Safety Report 18588732 (Version 1)
Quarter: 2020Q4

REPORT INFORMATION
  Report Type: Spontaneous
  Country: US (occurrence: US)
  Receive Date: 20201207
  Receipt Date: 20201207
  Transmission Date: 20210114
  Serious: Yes (Other)
  Sender: FDA-Public Use
  Company Number: US-BEH-2020125832

PATIENT
  Age: 10 Year
  Sex: Male

DRUGS (1)
  1. HIZENTRA [Suspect]
     Active Substance: HUMAN IMMUNOGLOBULIN G
     Dosage: 1 GRAM
     Route: 065

REACTIONS (5)
  - Blood brain barrier defect [Unknown]
  - Aggression [Unknown]
  - Self-injurious ideation [Unknown]
  - Drug intolerance [Unknown]
  - Mood altered [Unknown]
